FAERS Safety Report 7413221-0 (Version None)
Quarter: 2011Q2

REPORT INFORMATION
  Report Type: 
  Country: None (occurrence: None)
  Receive Date: 20110408
  Receipt Date: 20110408
  Transmission Date: 20111010
  Serious: Yes (Hospitalization)
  Sender: FDA-Public Use
  Company Number: None

PATIENT
  Age: 62 Year
  Sex: Male
  Weight: 107 kg

DRUGS (1)
  1. AZATHIOPRINE [Suspect]
     Indication: AUTOIMMUNE HEPATITIS
     Dosage: 100 MG EVERY DAY PO
     Route: 048
     Dates: start: 20110126, end: 20110218

REACTIONS (4)
  - ARTHRALGIA [None]
  - FATIGUE [None]
  - MYALGIA [None]
  - PYREXIA [None]
